FAERS Safety Report 17185007 (Version 2)
Quarter: 2020Q1

REPORT INFORMATION
  Report Type: Spontaneous
  Country: IT (occurrence: IT)
  Receive Date: 20191220
  Receipt Date: 20200309
  Transmission Date: 20200409
  Serious: Yes (Other)
  Sender: FDA-Public Use
  Company Number: NVSC2019IT071065

PATIENT
  Age: 65 Year
  Sex: Male

DRUGS (4)
  1. LAMOTRIGINE. [Suspect]
     Active Substance: LAMOTRIGINE
     Indication: IRRITABILITY
     Dosage: 25 MG, QD
     Route: 048
     Dates: start: 20190801, end: 20190811
  2. QUETIAPINA AUROBINDO [Concomitant]
     Active Substance: QUETIAPINE FUMARATE
     Indication: PRODUCT USED FOR UNKNOWN INDICATION
     Dosage: 25 MG
     Route: 048
  3. DEPAKIN CHRONO [Interacting]
     Active Substance: VALPROIC ACID
     Indication: IRRITABILITY
     Dosage: 300 MG, QD
     Route: 048
     Dates: start: 20190811, end: 20190811
  4. XANAX [Interacting]
     Active Substance: ALPRAZOLAM
     Indication: IRRITABILITY
     Dosage: 1 MG, QD
     Route: 048
     Dates: start: 20170801, end: 20190811

REACTIONS (3)
  - Urinary incontinence [Recovering/Resolving]
  - Drug interaction [Recovering/Resolving]
  - Sopor [Recovering/Resolving]

NARRATIVE: CASE EVENT DATE: 20190811
